FAERS Safety Report 9607391 (Version 1)
Quarter: 2013Q4

REPORT INFORMATION
  Report Type: Spontaneous
  Country: US (occurrence: None)
  Receive Date: 20131007
  Receipt Date: 20131007
  Transmission Date: 20140711
  Serious: Yes (Disabling)
  Sender: FDA-Public Use
  Company Number: None

PATIENT
  Age: 66 Year
  Sex: Male
  Weight: 112.49 kg

DRUGS (1)
  1. LISINOPRIL 40 MG LUPIN PHARMACE [Suspect]
     Indication: HYPERTENSION
     Route: 048
     Dates: end: 20130929

REACTIONS (6)
  - Cough [None]
  - Pain in extremity [None]
  - Arthritis [None]
  - Balance disorder [None]
  - Gait disturbance [None]
  - Asthenia [None]
